FAERS Safety Report 22091497 (Version 1)
Quarter: 2023Q1

REPORT INFORMATION
  Report Type: Report from Study
  Country: US (occurrence: US)
  Receive Date: 20230314
  Receipt Date: 20230314
  Transmission Date: 20230417
  Serious: Yes (Hospitalization, Other)
  Sender: FDA-Public Use
  Company Number: US-ABBVIE-4339269

PATIENT
  Sex: Female

DRUGS (1)
  1. ORILISSA [Suspect]
     Active Substance: ELAGOLIX SODIUM
     Indication: Product used for unknown indication
     Dosage: FREQUENCY: EVERY DAY
     Route: 048

REACTIONS (4)
  - Haemorrhage [Unknown]
  - Adverse drug reaction [Unknown]
  - Haematemesis [Unknown]
  - Muscle spasms [Unknown]
